FAERS Safety Report 8130601-9 (Version None)
Quarter: 2012Q1

REPORT INFORMATION
  Report Type: 
  Country: None (occurrence: None)
  Receive Date: 20120213
  Receipt Date: 20120203
  Transmission Date: 20120608
  Serious: Yes (Hospitalization)
  Sender: FDA-Public Use
  Company Number: US-AMGEN-USASP2012007616

PATIENT
  Age: 58 Year
  Sex: Female

DRUGS (1)
  1. ENBREL [Suspect]
     Indication: RHEUMATOID ARTHRITIS
     Dosage: 50 MG, QWK
     Dates: start: 19990101

REACTIONS (13)
  - THERAPEUTIC RESPONSE DECREASED [None]
  - RESPIRATORY TRACT INFECTION [None]
  - SPINAL CORD DISORDER [None]
  - RESPIRATORY FAILURE [None]
  - CARDIAC ARREST [None]
  - ARTHROPATHY [None]
  - THROMBOSIS [None]
  - HIP FRACTURE [None]
  - SPINAL COMPRESSION FRACTURE [None]
  - HYPOAESTHESIA [None]
  - RHEUMATOID NODULE [None]
  - KNEE ARTHROPLASTY [None]
  - STAPHYLOCOCCAL INFECTION [None]
